FAERS Safety Report 4970466-7 (Version None)
Quarter: 2006Q2

REPORT INFORMATION
  Report Type: 
  Country: None (occurrence: None)
  Receive Date: 20060406
  Receipt Date: 20060323
  Transmission Date: 20061013
  Serious: Yes (Hospitalization, Other)
  Sender: FDA-Public Use
  Company Number: CH200603004357

PATIENT
  Age: 54 Year
  Sex: Female

DRUGS (6)
  1. FLUCTINE (HYDROCHLORIDE) CAPSULE [Suspect]
     Indication: DEPRESSION
     Dosage: 20 MG, 2/D, ORAL
     Route: 048
     Dates: start: 20000101
  2. TRAMADOL HCL [Concomitant]
  3. STILNOX (ZOLPIDEM) [Concomitant]
  4. TIZANIDINE HCL [Concomitant]
  5. CLORAZEPATE DIPOTASSIUM [Concomitant]
  6. ACETAMINOPHEN [Concomitant]

REACTIONS (9)
  - CONVULSION [None]
  - DRUG TOXICITY [None]
  - ENCEPHALOPATHY [None]
  - MULTIPLE DRUG OVERDOSE INTENTIONAL [None]
  - NAUSEA [None]
  - SEROTONIN SYNDROME [None]
  - SPINAL COMPRESSION FRACTURE [None]
  - TRAUMATIC FRACTURE [None]
  - VOMITING [None]
